FAERS Safety Report 6884838-7 (Version None)
Quarter: 2010Q3

REPORT INFORMATION
  Report Type: 
  Country: None (occurrence: None)
  Receive Date: 20100729
  Receipt Date: 20070926
  Transmission Date: 20110219
  Serious: No
  Sender: FDA-Public Use
  Company Number: US-PFIZER INC-2007080530

PATIENT
  Sex: Male
  Weight: 93.2 kg

DRUGS (5)
  1. CELEBREX [Suspect]
     Indication: TENDONITIS
     Dates: start: 20070901, end: 20070926
  2. CELEBREX [Suspect]
     Indication: BURSITIS
  3. CELEBREX [Suspect]
     Indication: MUSCLE STRAIN
  4. ACETAMINOPHEN [Concomitant]
  5. TRAMADOL HYDROCHLORIDE [Concomitant]

REACTIONS (7)
  - ANXIETY [None]
  - ASTHENIA [None]
  - CONFUSIONAL STATE [None]
  - DIZZINESS [None]
  - DRY MOUTH [None]
  - INSOMNIA [None]
  - NAUSEA [None]
